FAERS Safety Report 8593042-6 (Version None)
Quarter: 2012Q3

REPORT INFORMATION
  Report Type: 
  Country: None (occurrence: None)
  Receive Date: 20120814
  Receipt Date: 20120808
  Transmission Date: 20120928
  Serious: Yes (Other)
  Sender: FDA-Public Use
  Company Number: US-GLAXOSMITHKLINE-A0979550A

PATIENT
  Sex: Female

DRUGS (2)
  1. WELLBUTRIN [Suspect]
     Route: 048
  2. NICOTINE [Suspect]
     Indication: EX-TOBACCO USER
     Route: 062

REACTIONS (3)
  - VOMITING [None]
  - NAUSEA [None]
  - CONVULSION [None]
